FAERS Safety Report 10039243 (Version 2)
Quarter: 2014Q2

REPORT INFORMATION
  Report Type: Spontaneous
  Country: JP (occurrence: JP)
  Receive Date: 20140326
  Receipt Date: 20140426
  Transmission Date: 20141212
  Serious: Yes (Other)
  Sender: FDA-Public Use
  Company Number: PHJP2014JP000640

PATIENT
  Age: 1 Year
  Sex: Male
  Weight: 9.8 kg

DRUGS (3)
  1. TEGRETOL TAB 200MG [Suspect]
     Dosage: 600 MG, UNK
     Route: 064
  2. VALPROATE SODIUM [Suspect]
     Dosage: 1200 MG, UNK
     Route: 064
  3. CLOBAZAM [Suspect]
     Dosage: 30 MG, UNK
     Route: 064

REACTIONS (8)
  - Foetal anticonvulsant syndrome [Unknown]
  - Meningocele [Unknown]
  - Hypertelorism of orbit [Unknown]
  - Dysmorphism [Unknown]
  - Bone deformity [Unknown]
  - Fat tissue increased [Unknown]
  - Nose deformity [Unknown]
  - Foetal exposure during pregnancy [Unknown]
